FAERS Safety Report 21757485 (Version 3)
Quarter: 2023Q1

REPORT INFORMATION
  Report Type: Report from Study
  Country: US (occurrence: US)
  Receive Date: 20221221
  Receipt Date: 20230304
  Transmission Date: 20230417
  Serious: No
  Sender: FDA-Public Use
  Company Number: US-002147023-NVSC2022US294230

PATIENT
  Sex: Male

DRUGS (1)
  1. COSENTYX [Suspect]
     Active Substance: SECUKINUMAB
     Indication: Psoriatic arthropathy
     Dosage: 150 MG, QW
     Route: 058

REACTIONS (6)
  - Illness [Unknown]
  - Head discomfort [Unknown]
  - Asthenia [Unknown]
  - Pyrexia [Unknown]
  - Nasal congestion [Unknown]
  - Nasopharyngitis [Unknown]
